FAERS Safety Report 10716241 (Version 1)
Quarter: 2015Q1

REPORT INFORMATION
  Report Type: Spontaneous
  Country: US (occurrence: None)
  Receive Date: 20150115
  Receipt Date: 20150115
  Transmission Date: 20150721
  Serious: Yes (Hospitalization)
  Sender: FDA-Public Use
  Company Number: None

PATIENT
  Age: 89 Year
  Sex: Female
  Weight: 65 kg

DRUGS (8)
  1. ASPIRIN. [Concomitant]
     Active Substance: ASPIRIN
  2. FOLIC ACID. [Concomitant]
     Active Substance: FOLIC ACID
  3. PROBIOTIC [Concomitant]
     Active Substance: PROBIOTICS NOS
  4. CRANBERRY. [Concomitant]
     Active Substance: CRANBERRY
  5. ESTRADIOL VAGINAL CREAM [Concomitant]
  6. MEMANTINE [Concomitant]
     Active Substance: MEMANTINE
  7. SULFAMETHOXAZOLE/TRIMETHOPRIM 800/160 [Suspect]
     Active Substance: SULFAMETHOXAZOLE\TRIMETHOPRIM
     Indication: URINARY TRACT INFECTION
     Route: 048
     Dates: start: 20150101, end: 20150103
  8. CHOLECALCIFEROL [Concomitant]
     Active Substance: CHOLECALCIFEROL

REACTIONS (3)
  - Stevens-Johnson syndrome [None]
  - Rash generalised [None]
  - Blister [None]

NARRATIVE: CASE EVENT DATE: 20150103
